FAERS Safety Report 8612532-0 (Version None)
Quarter: 2012Q3

REPORT INFORMATION
  Report Type: 
  Country: None (occurrence: None)
  Receive Date: 20120822
  Receipt Date: 20111104
  Transmission Date: 20120928
  Serious: No
  Sender: FDA-Public Use
  Company Number: US-ASTRAZENECA-2011SE59920

PATIENT
  Age: 72 Year
  Sex: Female
  Weight: 89.4 kg

DRUGS (9)
  1. VENECA [Concomitant]
  2. STALIX [Concomitant]
  3. SYMBICORT [Suspect]
     Dosage: 160/4.5 MCG TWO PUFFS TWO TIMES A DAY
     Route: 055
  4. SYMVASTATIN [Concomitant]
  5. SYMBICORT [Suspect]
     Indication: ASTHMA
     Dosage: 160/4.5 MCG TWO PUFFS TWO TIMES A DAY
     Route: 055
     Dates: start: 20110901
  6. METFORMIN [Concomitant]
  7. METOCLOPRAMIDE [Concomitant]
  8. NATAELINADE [Concomitant]
  9. INSULIN [Concomitant]

REACTIONS (2)
  - DYSPNOEA [None]
  - DRUG INEFFECTIVE [None]
